FAERS Safety Report 8824078 (Version 1)
Quarter: 2012Q4

REPORT INFORMATION
  Report Type: 
  Country: US (occurrence: US)
  Receive Date: 20121003
  Receipt Date: 20121003
  Transmission Date: 20130627
  Serious: Yes (Hospitalization, Other)
  Sender: FDA-Public Use
  Company Number: US-MERCK-1210USA000876

PATIENT
  Age: 37 Year
  Sex: Female

DRUGS (2)
  1. JANUVIA [Suspect]
     Route: 048
  2. VICTOZA [Suspect]
     Route: 058

REACTIONS (1)
  - Pancreatitis acute [Unknown]
